FAERS Safety Report 6487941-9 (Version None)
Quarter: 2009Q4

REPORT INFORMATION
  Report Type: 
  Country: None (occurrence: None)
  Receive Date: 20091210
  Receipt Date: 20090825
  Transmission Date: 20100525
  Serious: No
  Sender: FDA-Public Use
  Company Number: US-AMGEN-KDL361621

PATIENT
  Sex: Female

DRUGS (6)
  1. ENBREL [Suspect]
     Indication: PSORIASIS
  2. ENBREL [Suspect]
     Indication: DRUG USE FOR UNKNOWN INDICATION
  3. ACIPHEX [Concomitant]
  4. BETAMETHASONE [Concomitant]
  5. CLOBETASOL PROPIONATE [Concomitant]
  6. CALCITRIOL [Concomitant]

REACTIONS (3)
  - INJECTION SITE ERYTHEMA [None]
  - INJECTION SITE SWELLING [None]
  - INJECTION SITE WARMTH [None]
